FAERS Safety Report 19508167 (Version 4)
Quarter: 2021Q3

REPORT INFORMATION
  Report Type: Spontaneous
  Country: US (occurrence: US)
  Receive Date: 20210708
  Receipt Date: 20210913
  Transmission Date: 20211014
  Serious: No
  Sender: FDA-Public Use
  Company Number: US-BIOVITRUM-2021US5166

PATIENT
  Age: 20 Year
  Sex: Male

DRUGS (3)
  1. GAMIFANT [Suspect]
     Active Substance: EMAPALUMAB-LZSG
     Indication: HAEMOPHAGOCYTIC LYMPHOHISTIOCYTOSIS
     Route: 042
     Dates: start: 20210528
  2. GAMIFANT [Suspect]
     Active Substance: EMAPALUMAB-LZSG
     Route: 042
     Dates: start: 20210521
  3. GAMIFANT [Suspect]
     Active Substance: EMAPALUMAB-LZSG
     Route: 042
     Dates: start: 20210521

REACTIONS (7)
  - Condition aggravated [Unknown]
  - Epstein-Barr virus infection [Unknown]
  - Haemophagocytic lymphohistiocytosis [Unknown]
  - Product dose omission issue [Unknown]
  - Serum ferritin abnormal [Unknown]
  - Off label use [Unknown]
  - Blood test abnormal [Unknown]

NARRATIVE: CASE EVENT DATE: 20210521
